FAERS Safety Report 5996988-8 (Version None)
Quarter: 2008Q4

REPORT INFORMATION
  Report Type: 
  Country: None (occurrence: None)
  Receive Date: 20081212
  Receipt Date: 20081206
  Transmission Date: 20090506
  Serious: Yes (Other)
  Sender: FDA-Public Use
  Company Number: US-GENENTECH-269863

PATIENT
  Sex: Male
  Weight: 78.458 kg

DRUGS (3)
  1. RITUXAN [Suspect]
     Indication: CASTLEMAN'S DISEASE
     Dosage: 375 MG/M2, 1/WEEK
     Route: 042
     Dates: start: 20070827
  2. RITUXAN [Suspect]
     Indication: LYMPHOMA
  3. PREDNISONE TAB [Concomitant]
     Indication: CASTLEMAN'S DISEASE
     Dosage: 1 MG/KG, UNK

REACTIONS (1)
  - KAPOSI'S SARCOMA [None]
